FAERS Safety Report 7130860-5 (Version None)
Quarter: 2010Q4

REPORT INFORMATION
  Report Type: 
  Country: None (occurrence: None)
  Receive Date: 20101201
  Receipt Date: 20101123
  Transmission Date: 20110411
  Serious: Yes (Hospitalization)
  Sender: FDA-Public Use
  Company Number: DE-ROCHE-744740

PATIENT
  Age: 56 Year
  Sex: Male
  Weight: 158 kg

DRUGS (12)
  1. ROACTEMRA [Suspect]
     Indication: RHEUMATOID ARTHRITIS
     Route: 042
     Dates: start: 20100114
  2. ASPIRIN [Concomitant]
  3. LERCANIDIPIN [Concomitant]
  4. CANDESARTAN/HYDROCHLOROTHIAZIDE [Concomitant]
  5. HCT [Concomitant]
  6. METFORMIN HCL [Concomitant]
  7. METOPROLOL [Concomitant]
  8. SIMVASTATIN [Concomitant]
  9. IBUPROFEN [Concomitant]
  10. METHOTREXAT [Concomitant]
     Indication: RHEUMATOID ARTHRITIS
     Dates: start: 19970101, end: 19980101
  11. METHOTREXAT [Concomitant]
     Dates: start: 20070101, end: 20080101
  12. METHOTREXAT [Concomitant]
     Dates: start: 20100101, end: 20100101

REACTIONS (2)
  - BUNDLE BRANCH BLOCK RIGHT [None]
  - CHEST PAIN [None]
